FAERS Safety Report 12612163 (Version 1)
Quarter: 2016Q3

REPORT INFORMATION
  Report Type: Spontaneous
  Country: US (occurrence: US)
  Receive Date: 20160801
  Receipt Date: 20160801
  Transmission Date: 20161109
  Serious: Yes (Death, Hospitalization)
  Sender: FDA-Public Use
  Company Number: US-VALIDUS PHARMACEUTICALS LLC-US-2015VAL000229

PATIENT
  Age: 41 Year
  Sex: Female
  Weight: 61.8 kg

DRUGS (2)
  1. VALPROIC ACID. [Suspect]
     Active Substance: VALPROIC ACID
     Indication: PRODUCT USED FOR UNKNOWN INDICATION
     Dosage: UNK
     Route: 048
  2. CARBAMAZEPINE. [Suspect]
     Active Substance: CARBAMAZEPINE
     Indication: PRODUCT USED FOR UNKNOWN INDICATION
     Dosage: UNK
     Route: 048

REACTIONS (14)
  - Bundle branch block right [Recovered/Resolved]
  - Haemodynamic instability [Unknown]
  - Hypotension [Recovered/Resolved]
  - Gastrointestinal sounds abnormal [Recovered/Resolved]
  - Areflexia [Recovered/Resolved]
  - Overdose [Fatal]
  - Pupil fixed [Recovered/Resolved]
  - Acidosis [Recovered/Resolved]
  - Unresponsive to stimuli [Recovered/Resolved]
  - Cardiac arrest [Recovered/Resolved]
  - Compartment syndrome [Recovered/Resolved]
  - Brain death [Fatal]
  - Brain injury [Recovered/Resolved]
  - Electrocardiogram QT prolonged [Recovered/Resolved]
